FAERS Safety Report 6750256-5 (Version None)
Quarter: 2010Q2

REPORT INFORMATION
  Report Type: 
  Country: None (occurrence: None)
  Receive Date: 20100601
  Receipt Date: 20100524
  Transmission Date: 20101027
  Serious: Yes (Hospitalization, Other)
  Sender: FDA-Public Use
  Company Number: US-PFIZER INC-2010058037

PATIENT
  Sex: Female
  Weight: 77.098 kg

DRUGS (5)
  1. CELEBREX [Suspect]
     Indication: ARTHRITIS
     Dosage: 200 MG, 1X/DAY
     Route: 048
     Dates: start: 20070717, end: 20100430
  2. GLUCOPHAGE [Concomitant]
     Indication: DIABETES MELLITUS
     Dosage: 1000 MG, 2X/DAY
     Route: 048
  3. GLUCOTROL [Concomitant]
     Indication: DIABETES MELLITUS
     Dosage: 10 MG, 2X/DAY
     Route: 048
  4. TOPROL-XL [Concomitant]
     Indication: HYPERTENSION
     Dosage: 100 MG, 1X/DAY
     Route: 048
  5. METOPROLOL [Concomitant]
     Indication: HYPERTENSION
     Dosage: 250 MG, 2X/DAY

REACTIONS (3)
  - CORONARY ARTERY OCCLUSION [None]
  - EJECTION FRACTION DECREASED [None]
  - MYOCARDIAL INFARCTION [None]
